FAERS Safety Report 9785055 (Version 1)
Quarter: 2013Q4

REPORT INFORMATION
  Report Type: Spontaneous
  Country: FI (occurrence: FI)
  Receive Date: 20131227
  Receipt Date: 20131227
  Transmission Date: 20140711
  Serious: Yes (Other)
  Sender: FDA-Public Use
  Company Number: FI-AMGEN-FINSP2013090298

PATIENT
  Age: 77 Year
  Sex: Male

DRUGS (9)
  1. XGEVA [Suspect]
     Indication: METASTASES TO BONE
     Dosage: UNK
     Route: 058
     Dates: start: 20120417
  2. PREDNISONE [Suspect]
     Indication: PROSTATE CANCER
     Dosage: 5 MG, BID
     Route: 048
     Dates: start: 20110509, end: 20130706
  3. ABIRATERONE [Concomitant]
     Indication: PROSTATE CANCER
     Dosage: 1000 MG, UNK
     Route: 065
     Dates: start: 20110509, end: 20121001
  4. THYROXIN [Concomitant]
     Route: 048
  5. NITROFURANTOIN [Concomitant]
     Route: 065
  6. FURESIS [Concomitant]
     Route: 065
  7. DIOVAN [Concomitant]
     Route: 065
  8. SOMAC [Concomitant]
     Route: 065
  9. DUPHALAC                           /00163401/ [Concomitant]
     Route: 048

REACTIONS (2)
  - Osteonecrosis [Recovered/Resolved with Sequelae]
  - Arthralgia [Recovered/Resolved with Sequelae]
